FAERS Safety Report 14077264 (Version 1)
Quarter: 2017Q4

REPORT INFORMATION
  Report Type: Spontaneous
  Country: US (occurrence: US)
  Receive Date: 20171012
  Receipt Date: 20171012
  Transmission Date: 20180321
  Serious: No
  Sender: FDA-Public Use
  Company Number: US-LUPIN PHARMACEUTICALS INC.-E2B_00006070

PATIENT
  Sex: Male

DRUGS (2)
  1. TOBRAMYCIN AND DEXAMETHASONE [Concomitant]
     Active Substance: DEXAMETHASONE\TOBRAMYCIN
     Indication: HORDEOLUM
     Dosage: UNK UNK,UNK,UNKNOWN
     Route: 065
  2. CEPHALEXIN CAPSULES USP, 500 MG [Suspect]
     Active Substance: CEPHALEXIN
     Indication: HORDEOLUM
     Dosage: 500 MG,TID,
     Route: 048
     Dates: start: 20160822

REACTIONS (2)
  - Eyelid pain [Not Recovered/Not Resolved]
  - Eye swelling [Not Recovered/Not Resolved]
